FAERS Safety Report 7995429 (Version 4)
Quarter: 2013Q1

REPORT INFORMATION
  Report Type: Spontaneous
  Country: JP (occurrence: None)
  Receive Date: 20110527
  Receipt Date: 20130116
  Transmission Date: 20140127
  Serious: Yes (Death)
  Sender: FDA-Public Use
  Company Number: JP-2011-10808

PATIENT
  Age: 36 Year
  Sex: Male
  Weight: 64 kg

DRUGS (14)
  1. SAMSCA [Suspect]
     Indication: CARDIAC FAILURE
     Dosage: 7.5 MG MILLIGRAM(S), QD, ORAL
     Route: 048
     Dates: start: 20110322, end: 20110323
  2. ENALAPRIL MALEATE [Concomitant]
  3. DIGOXIN (DIGOXIN) [Concomitant]
  4. ALDACTONE [Concomitant]
  5. ALLOPURINOL [Concomitant]
  6. WARFARIN (WARFARIN SODIUM) TABLET [Concomitant]
  7. CARVEDILOL [Concomitant]
  8. GASTER [Concomitant]
  9. MAGMITT (MAGNESIUM OXIDE) TABLET [Concomitant]
  10. SEISHOKU (ISOTONIC SODIUM) INJECTION [Concomitant]
  11. VEEN-F (ACETATED RINGER) INJECTION [Concomitant]
  12. DOPAMINE (DOPAMINE HYDROCHLORIDE) INJECTION [Concomitant]
  13. DOBUTAMINE (DOBUTAMINE HYDROCHLORIDE) INJECTION [Concomitant]
  14. LASIX [Concomitant]

REACTIONS (2)
  - Cardiac failure [None]
  - Hypotension [None]
